FAERS Safety Report 16351519 (Version 1)
Quarter: 2019Q2

REPORT INFORMATION
  Report Type: Spontaneous
  Country: US (occurrence: US)
  Receive Date: 20190524
  Receipt Date: 20190524
  Transmission Date: 20190711
  Serious: No
  Sender: FDA-Public Use
  Company Number: US-AMGEN-USASP2019080943

PATIENT
  Age: 61 Year
  Sex: Female

DRUGS (5)
  1. COLCRYS [Concomitant]
     Active Substance: COLCHICINE
     Dosage: 0.6 MILLIGRAM
  2. PREDNISOLONE. [Concomitant]
     Active Substance: PREDNISOLONE
     Dosage: UNK
  3. ENBREL [Suspect]
     Active Substance: ETANERCEPT
     Indication: DRUG THERAPY
     Dosage: 50 MILLIGRAM, QWK
     Route: 058
     Dates: start: 20190430
  4. PROTONIX [OMEPRAZOLE] [Concomitant]
     Active Substance: OMEPRAZOLE
     Dosage: 40 MILLIGRAM
  5. ARAVA [Concomitant]
     Active Substance: LEFLUNOMIDE
     Dosage: 20 MILLIGRAM

REACTIONS (6)
  - Injection site erythema [Recovered/Resolved]
  - Bone pain [Not Recovered/Not Resolved]
  - Injection site warmth [Recovered/Resolved]
  - Injection site pruritus [Recovered/Resolved]
  - Off label use [Unknown]
  - Arthralgia [Not Recovered/Not Resolved]

NARRATIVE: CASE EVENT DATE: 2019
